FAERS Safety Report 6647147-7 (Version None)
Quarter: 2010Q1

REPORT INFORMATION
  Report Type: 
  Country: None (occurrence: None)
  Receive Date: 20100323
  Receipt Date: 20100317
  Transmission Date: 20100710
  Serious: Yes (Other)
  Sender: FDA-Public Use
  Company Number: PHHY2010TR16626

PATIENT
  Age: 79 Year
  Sex: Female
  Weight: 47 kg

DRUGS (2)
  1. EXELON [Suspect]
     Indication: DEMENTIA ALZHEIMER'S TYPE
     Dosage: 1 DF, QD
     Route: 062
     Dates: start: 20091001, end: 20100201
  2. TARKA [Suspect]
     Dosage: 1 DF, QD

REACTIONS (5)
  - ARRHYTHMIA [None]
  - BLOOD PRESSURE ABNORMAL [None]
  - BRADYCARDIA [None]
  - DEPRESSION [None]
  - FATIGUE [None]
